FAERS Safety Report 9489455 (Version 1)
Quarter: 2013Q3

REPORT INFORMATION
  Report Type: Spontaneous
  Country: US (occurrence: US)
  Receive Date: 20130829
  Receipt Date: 20130829
  Transmission Date: 20140515
  Serious: Yes (Other)
  Sender: FDA-Public Use
  Company Number: PHHY2013US093604

PATIENT
  Sex: Female

DRUGS (4)
  1. BACLOFEN INTRATHECAL [Suspect]
     Indication: PAIN
     Dosage: UNK UKN, UNK
     Route: 037
  2. METHADONE HYDROCHLORIDE TABLETS USP [Suspect]
     Indication: NEURALGIA
     Dosage: UNK UKN, UNK
     Route: 048
  3. DILAUDID [Suspect]
     Indication: PAIN
     Dosage: 20 MG, DAILY
     Route: 037
  4. DILAUDID [Suspect]
     Dosage: 8 MG, DAILY
     Route: 037

REACTIONS (6)
  - Depression [Unknown]
  - Staphylococcal infection [Unknown]
  - Implant site infection [Unknown]
  - Performance status decreased [Unknown]
  - No therapeutic response [Unknown]
  - Breakthrough pain [Unknown]
